FAERS Safety Report 17334668 (Version 1)
Quarter: 2020Q1

REPORT INFORMATION
  Report Type: Spontaneous
  Country: US (occurrence: US)
  Receive Date: 20200128
  Receipt Date: 20200128
  Transmission Date: 20200409
  Serious: Yes (Other)
  Sender: FDA-Public Use
  Company Number: US-CHEPLA-C20200439_03

PATIENT
  Age: 67 Year
  Sex: Female

DRUGS (6)
  1. DA-EPOCH-R [Suspect]
     Active Substance: CYCLOPHOSPHAMIDE\DOXORUBICIN\ETOPOSIDE\PREDNISONE\RITUXIMAB\VINCRISTINE
     Indication: B-CELL LYMPHOMA
  2. R-GDP [RITUXIMAB] [Suspect]
     Active Substance: RITUXIMAB
  3. AXICABTAGEN-CILOLEUCEL [KTE C19] [Suspect]
     Active Substance: AXICABTAGENE CILOLEUCEL
     Indication: B-CELL LYMPHOMA
  4. R-GDP [GEMCITABINE] [Suspect]
     Active Substance: GEMCITABINE
  5. R-GDP [DEXAMETHASONE] [Suspect]
     Active Substance: DEXAMETHASONE
  6. R-GDP [CISPLATIN] [Suspect]
     Active Substance: CISPLATIN
     Indication: B-CELL LYMPHOMA

REACTIONS (1)
  - Malignant neoplasm progression [Unknown]
